FAERS Safety Report 10268682 (Version 2)
Quarter: 2014Q2

REPORT INFORMATION
  Report Type: Spontaneous
  Country: JP (occurrence: JP)
  Receive Date: 20140630
  Receipt Date: 20140630
  Transmission Date: 20141212
  Serious: Yes (Other)
  Sender: FDA-Public Use
  Company Number: PHHY2014JP076962

PATIENT
  Age: 62 Year
  Sex: Male

DRUGS (4)
  1. ESANBUTOL [Suspect]
     Indication: PULMONARY TUBERCULOSIS
     Dosage: 750 MG, DAILY
     Route: 048
     Dates: start: 20140509, end: 20140609
  2. RIFAMPICIN SANDOZ [Suspect]
     Indication: PULMONARY TUBERCULOSIS
     Dosage: 600 MG, DAILY
     Route: 048
     Dates: start: 20140509, end: 20140609
  3. ISCOTIN [Suspect]
     Indication: PULMONARY TUBERCULOSIS
     Dosage: 300 MG, DAILY
     Dates: start: 20140509, end: 20140609
  4. PYRAMIDE [Suspect]
     Indication: PULMONARY TUBERCULOSIS
     Dosage: 150 MG, DAILY
     Route: 048
     Dates: start: 20140509, end: 20140609

REACTIONS (1)
  - Pneumonia [Recovering/Resolving]
